FAERS Safety Report 9458915 (Version 1)
Quarter: 2013Q3

REPORT INFORMATION
  Report Type: Spontaneous
  Country: US (occurrence: US)
  Receive Date: 20130814
  Receipt Date: 20130814
  Transmission Date: 20140515
  Serious: Yes (Hospitalization, Other)
  Sender: FDA-Public Use
  Company Number: US-MPIJNJ-2013-05991

PATIENT
  Age: 68 Year
  Sex: Female
  Weight: 81.63 kg

DRUGS (22)
  1. VELCADE [Suspect]
     Indication: PRODUCT USED FOR UNKNOWN INDICATION
     Dosage: UNK
     Route: 065
  2. VELCADE [Suspect]
     Dosage: UNK
     Route: 065
  3. REVLIMID [Suspect]
     Indication: PLASMA CELL MYELOMA
     Dosage: 15 MG, QD
     Route: 048
     Dates: start: 20130222, end: 20130505
  4. CALCIUM [Concomitant]
     Indication: PRODUCT USED FOR UNKNOWN INDICATION
     Dosage: 500 MG, UNK
     Route: 048
  5. PROCARDIA XL [Concomitant]
     Indication: PRODUCT USED FOR UNKNOWN INDICATION
     Dosage: 60 MG, UNK
     Route: 048
  6. DOCUSATE SODIUM [Concomitant]
     Indication: PRODUCT USED FOR UNKNOWN INDICATION
     Route: 065
  7. SYNTHROID [Concomitant]
     Indication: PRODUCT USED FOR UNKNOWN INDICATION
     Dosage: 75 ?G, QD
     Route: 048
  8. ZOCOR [Concomitant]
     Indication: PRODUCT USED FOR UNKNOWN INDICATION
     Dosage: 40 MG, QD
     Route: 065
  9. KLOR-CON [Concomitant]
     Indication: PRODUCT USED FOR UNKNOWN INDICATION
     Dosage: 10 MEQ, TID
     Route: 048
  10. KLOR-CON [Concomitant]
     Dosage: 20 MEQ, BID
     Route: 048
  11. KLOR-CON [Concomitant]
     Dosage: 20 MEQ, TID
     Route: 048
  12. ASA [Concomitant]
     Indication: PRODUCT USED FOR UNKNOWN INDICATION
     Dosage: 325 MG, QD
     Route: 048
  13. ATENOLOL [Concomitant]
     Indication: PRODUCT USED FOR UNKNOWN INDICATION
     Dosage: 50 MG, QD
     Route: 048
  14. DOCUSATE SODIUM [Concomitant]
     Indication: PRODUCT USED FOR UNKNOWN INDICATION
     Dosage: UNK
     Route: 048
  15. GLIPIZIDE [Concomitant]
     Indication: PRODUCT USED FOR UNKNOWN INDICATION
     Dosage: 5 MG, QD
     Route: 048
  16. ONDANSETRON HYDROCHLORIDE [Concomitant]
     Indication: NAUSEA
     Dosage: 8 MG, PRN
     Route: 048
  17. DEXAMETHASONE [Concomitant]
     Indication: PRODUCT USED FOR UNKNOWN INDICATION
     Dosage: 4 MG, UNK
     Route: 048
  18. ACYCLOVIR                          /00587301/ [Concomitant]
     Indication: PRODUCT USED FOR UNKNOWN INDICATION
     Dosage: 400 MG, BID
     Route: 065
  19. SPIRONOLACTONE [Concomitant]
     Indication: PRODUCT USED FOR UNKNOWN INDICATION
     Route: 065
  20. IMODIUM                            /00384302/ [Concomitant]
     Indication: DIARRHOEA
     Route: 065
  21. ESCITALOPRAM OXALATE [Concomitant]
     Indication: PRODUCT USED FOR UNKNOWN INDICATION
     Dosage: 10 MG, QD
     Route: 048
  22. OXYCODONE HYDROCHLORIDE [Concomitant]
     Indication: PAIN
     Dosage: 5 MG, PRN
     Route: 048

REACTIONS (6)
  - Pulmonary embolism [Recovered/Resolved]
  - Deep vein thrombosis [Recovering/Resolving]
  - Atrial flutter [Recovering/Resolving]
  - Atrial fibrillation [Recovering/Resolving]
  - Neuropathy peripheral [Unknown]
  - Fatigue [Unknown]
